FAERS Safety Report 17488658 (Version 2)
Quarter: 2020Q2

REPORT INFORMATION
  Report Type: Spontaneous
  Country: DE (occurrence: DE)
  Receive Date: 20200303
  Receipt Date: 20200504
  Transmission Date: 20200713
  Serious: Yes (Disabling, Other)
  Sender: FDA-Public Use
  Company Number: DE-AUROBINDO-AUR-APL-2019-105880

PATIENT
  Age: 53 Year
  Sex: Male
  Weight: 77 kg

DRUGS (4)
  1. CISPLATIN. [Concomitant]
     Active Substance: CISPLATIN
     Indication: IMMUNOCHEMOTHERAPY
     Dosage: 75 MILLIGRAM/SQ. METER
     Route: 065
     Dates: start: 20191031
  2. PEMETREXED. [Concomitant]
     Active Substance: PEMETREXED
     Indication: IMMUNOCHEMOTHERAPY
     Dosage: 500 MILLIGRAM/SQ. METER
     Route: 065
     Dates: start: 20191031
  3. PEMBROLIZUMAB. [Concomitant]
     Active Substance: PEMBROLIZUMAB
     Indication: IMMUNOCHEMOTHERAPY
     Dosage: 200 MILLIGRAM
     Route: 042
     Dates: start: 20191031
  4. LEVOFLOXACIN AUROBINDO FILM-COATED TABLETS 500MG [Suspect]
     Active Substance: LEVOFLOXACIN
     Indication: PRODUCT USED FOR UNKNOWN INDICATION
     Dosage: 1 DOSAGE FORM, DAILY
     Route: 048
     Dates: start: 20191125, end: 20191127

REACTIONS (5)
  - Arthralgia [Recovered/Resolved]
  - Joint swelling [Recovered/Resolved]
  - Tendon pain [Recovered/Resolved]
  - Loss of personal independence in daily activities [Recovered/Resolved]
  - Gait disturbance [Recovered/Resolved]

NARRATIVE: CASE EVENT DATE: 20191125
